FAERS Safety Report 20752064 (Version 1)
Quarter: 2022Q2

REPORT INFORMATION
  Report Type: Spontaneous
  Country: US (occurrence: US)
  Receive Date: 20220426
  Receipt Date: 20220426
  Transmission Date: 20220721
  Serious: No
  Sender: FDA-Public Use
  Company Number: US-GW PHARMA-2022-US-012680

PATIENT
  Age: 60 Year
  Sex: Female

DRUGS (1)
  1. EPIDIOLEX [Suspect]
     Active Substance: CANNABIDIOL
     Indication: Product used for unknown indication
     Dosage: 6.5 MILLILITER, BID

REACTIONS (3)
  - Seizure [Unknown]
  - Product leakage [Unknown]
  - Product colour issue [Unknown]

NARRATIVE: CASE EVENT DATE: 20220416
